FAERS Safety Report 7784886-9 (Version None)
Quarter: 2011Q3

REPORT INFORMATION
  Report Type: 
  Country: None (occurrence: None)
  Receive Date: 20110928
  Receipt Date: 20110919
  Transmission Date: 20111222
  Serious: Yes (Hospitalization)
  Sender: FDA-Public Use
  Company Number: US-BAYER-2011-050456

PATIENT
  Age: 22 Year
  Sex: Female
  Weight: 63.492 kg

DRUGS (5)
  1. DROSPIRENONE AND ETHINYL ESTRADIOL [Suspect]
     Indication: ACNE
     Dosage: UNK
     Dates: start: 20090101
  2. NEXIUM [Concomitant]
  3. IBUPROFEN (ADVIL) [Concomitant]
  4. PERCOCET [Concomitant]
  5. HYDROCODONE [Concomitant]

REACTIONS (5)
  - PAIN [None]
  - PANCREATITIS [None]
  - VOMITING [None]
  - CHOLELITHIASIS [None]
  - POST PROCEDURAL BILE LEAK [None]
